FAERS Safety Report 9495667 (Version 2)
Quarter: 2013Q3

REPORT INFORMATION
  Report Type: Spontaneous
  Country: GB (occurrence: GB)
  Receive Date: 20130903
  Receipt Date: 20130913
  Transmission Date: 20140515
  Serious: Yes (Other)
  Sender: FDA-Public Use
  Company Number: GB-PFIZER INC-2013250707

PATIENT
  Age: 77 Year
  Sex: Male

DRUGS (4)
  1. RAMIPRIL [Suspect]
     Dosage: 5 MG, 1X/DAY
     Route: 065
  2. DOXAZOSIN MESILATE [Suspect]
     Dosage: UNK
     Route: 065
     Dates: start: 201307
  3. ASPIRIN [Concomitant]
     Dosage: 75 MG, UNK
  4. FELODIPINE [Concomitant]
     Dosage: UNK

REACTIONS (1)
  - Atrial fibrillation [Recovered/Resolved]
